FAERS Safety Report 13309050 (Version 1)
Quarter: 2017Q1

REPORT INFORMATION
  Report Type: Spontaneous
  Country: US (occurrence: US)
  Receive Date: 20170308
  Receipt Date: 20170308
  Transmission Date: 20170428
  Serious: No
  Sender: FDA-Public Use
  Company Number: None

PATIENT

DRUGS (2)
  1. CEFTRIAXONE. [Suspect]
     Active Substance: CEFTRIAXONE
  2. CEFTRIAXONE. [Suspect]
     Active Substance: CEFTRIAXONE

REACTIONS (3)
  - Product label issue [None]
  - Product preparation error [None]
  - Off label use [None]

NARRATIVE: CASE EVENT DATE: 20170308
